FAERS Safety Report 4993222-2 (Version None)
Quarter: 2006Q1

REPORT INFORMATION
  Report Type: 
  Country: None (occurrence: None)
  Receive Date: 20060314
  Receipt Date: 20050407
  Transmission Date: 20060701
  Serious: Yes (Other)
  Sender: FDA-Public Use
  Company Number: 200510256BCC

PATIENT
  Age: 48 Year
  Sex: Female
  Weight: 81.6475 kg

DRUGS (8)
  1. ALEVE [Suspect]
     Indication: BACK PAIN
     Dosage: PRN, ORAL
     Route: 048
     Dates: start: 20041101, end: 20050117
  2. FLONASE [Concomitant]
  3. FLEXERIL [Concomitant]
  4. CELEBREX [Concomitant]
  5. NEXIUM [Concomitant]
  6. ALLEGRA [Concomitant]
  7. ZOCOR [Concomitant]
  8. GLUCOSAMINE [Concomitant]

REACTIONS (3)
  - BLEEDING TIME PROLONGED [None]
  - COAGULOPATHY [None]
  - PLATELET COUNT DECREASED [None]
